FAERS Safety Report 8950331 (Version 1)
Quarter: 2012Q4

REPORT INFORMATION
  Report Type: Spontaneous
  Country: US (occurrence: None)
  Receive Date: 20121130
  Receipt Date: 20121130
  Transmission Date: 20130627
  Serious: Yes (Other)
  Sender: FDA-Public Use
  Company Number: None

PATIENT
  Age: 52 Year
  Sex: Male
  Weight: 88.45 kg

DRUGS (2)
  1. LEVOFLOXACIN [Suspect]
     Indication: SINUS INFECTION
     Dates: start: 20121127, end: 20121127
  2. LEVAQUIN [Concomitant]

REACTIONS (2)
  - Arthralgia [None]
  - Joint swelling [None]
